FAERS Safety Report 5888369-2 (Version None)
Quarter: 2008Q3

REPORT INFORMATION
  Report Type: 
  Country: None (occurrence: None)
  Receive Date: 20080916
  Receipt Date: 20080909
  Transmission Date: 20090109
  Serious: Yes (Death)
  Sender: FDA-Public Use
  Company Number: 2008JP004124

PATIENT
  Age: 18 Year
  Sex: Male

DRUGS (1)
  1. FK463(MICAFUNGIN) INJECTION [Suspect]
     Indication: FEBRILE NEUTROPENIA
     Dosage: 100 MG, IV NOS
     Route: 042
     Dates: start: 20080708, end: 20080813

REACTIONS (3)
  - HYPERCAPNIA [None]
  - HYPOXIA [None]
  - SEPTIC SHOCK [None]
